FAERS Safety Report 9082955 (Version 1)
Quarter: 2013Q1

REPORT INFORMATION
  Report Type: Report from Study
  Country: US (occurrence: US)
  Receive Date: 20130130
  Receipt Date: 20130130
  Transmission Date: 20140127
  Serious: Yes (Hospitalization)
  Sender: FDA-Public Use
  Company Number: US-ABBOTT-12P-163-0979442-00

PATIENT
  Sex: Male

DRUGS (4)
  1. HUMIRA [Suspect]
     Indication: CROHN^S DISEASE
     Dates: start: 201109, end: 201201
  2. HUMIRA [Suspect]
     Dates: start: 201201, end: 201202
  3. HUMIRA [Suspect]
     Dates: start: 201209
  4. PRILOSEC [Concomitant]
     Indication: PRODUCT USED FOR UNKNOWN INDICATION

REACTIONS (4)
  - Abscess [Recovered/Resolved]
  - Abdominal pain [Recovered/Resolved]
  - White blood cell count increased [Recovered/Resolved]
  - Crohn^s disease [Recovered/Resolved]
